FAERS Safety Report 24119949 (Version 1)
Quarter: 2024Q3

REPORT INFORMATION
  Report Type: Spontaneous
  Country: US (occurrence: US)
  Receive Date: 20240722
  Receipt Date: 20240722
  Transmission Date: 20241017
  Serious: No
  Sender: LUPIN
  Company Number: US-LUPIN PHARMACEUTICALS INC.-2024-06610

PATIENT

DRUGS (3)
  1. BUPROPION HYDROCHLORIDE [Suspect]
     Active Substance: BUPROPION HYDROCHLORIDE
     Indication: Depression
     Dosage: UNK
     Route: 065
  2. BUPROPION HYDROCHLORIDE [Suspect]
     Active Substance: BUPROPION HYDROCHLORIDE
     Indication: Anxiety
  3. BUPROPION HYDROCHLORIDE [Suspect]
     Active Substance: BUPROPION HYDROCHLORIDE
     Indication: Attention deficit hyperactivity disorder

REACTIONS (8)
  - Abdominal discomfort [Recovering/Resolving]
  - Rash [Unknown]
  - Feeling abnormal [Unknown]
  - Feeling of despair [Recovering/Resolving]
  - Weight decreased [Unknown]
  - Soliloquy [Recovering/Resolving]
  - Binge eating [Recovering/Resolving]
  - Product use in unapproved indication [Unknown]
